FAERS Safety Report 6612097-9 (Version None)
Quarter: 2010Q1

REPORT INFORMATION
  Report Type: 
  Country: None (occurrence: None)
  Receive Date: 20100225
  Receipt Date: 20100215
  Transmission Date: 20100710
  Serious: Yes (Hospitalization)
  Sender: FDA-Public Use
  Company Number: 2007-152597-NL

PATIENT
  Age: 23 Year
  Sex: Female
  Weight: 73.9 kg

DRUGS (2)
  1. NUVARING [Suspect]
     Indication: CONTRACEPTION
     Dosage: VAG
     Route: 067
     Dates: start: 20050101
  2. NEXIUM [Concomitant]

REACTIONS (24)
  - ACUTE MYOCARDIAL INFARCTION [None]
  - ANXIETY [None]
  - COAGULOPATHY [None]
  - COGNITIVE DISORDER [None]
  - CONGESTIVE CARDIOMYOPATHY [None]
  - CONTUSION [None]
  - CORONARY ARTERY THROMBOSIS [None]
  - DEPRESSION [None]
  - HERPES DERMATITIS [None]
  - ILIAC ARTERY STENOSIS [None]
  - ISCHAEMIC CARDIOMYOPATHY [None]
  - MITRAL VALVE INCOMPETENCE [None]
  - MUSCLE STRAIN [None]
  - PANIC DISORDER [None]
  - PERICARDIAL EFFUSION [None]
  - PERIPHERAL ARTERIAL OCCLUSIVE DISEASE [None]
  - POST-TRAUMATIC STRESS DISORDER [None]
  - PROTEIN S DEFICIENCY [None]
  - REGURGITATION [None]
  - ROAD TRAFFIC ACCIDENT [None]
  - SINUS TACHYCARDIA [None]
  - STRESS [None]
  - TRICUSPID VALVE INCOMPETENCE [None]
  - UTERINE DILATION AND CURETTAGE [None]
